FAERS Safety Report 21240574 (Version 1)
Quarter: 2022Q3

REPORT INFORMATION
  Report Type: Spontaneous
  Country: IN (occurrence: IN)
  Receive Date: 20220823
  Receipt Date: 20220823
  Transmission Date: 20221026
  Serious: Yes (Other)
  Sender: FDA-Public Use
  Company Number: IN-SUN PHARMACEUTICAL INDUSTRIES LTD-2022R1-349492

PATIENT
  Age: 24 Month
  Sex: Female

DRUGS (1)
  1. VALPROIC ACID [Suspect]
     Active Substance: VALPROIC ACID
     Indication: Partial seizures
     Dosage: 40 MILLIGRAM/KILOGRAM, DAILY
     Route: 048

REACTIONS (2)
  - Hypertensive urgency [Recovered/Resolved]
  - Toxicity to various agents [Unknown]
